FAERS Safety Report 8885323 (Version 1)
Quarter: 2012Q4

REPORT INFORMATION
  Report Type: 
  Country: US (occurrence: US)
  Receive Date: 20121102
  Receipt Date: 20121102
  Transmission Date: 20130627
  Serious: Yes (Other)
  Sender: FDA-Public Use
  Company Number: US-BAYER-2012-112508

PATIENT
  Sex: Male

DRUGS (3)
  1. ALKA-SELTZER ORIGINAL [Suspect]
     Indication: ACID REFLUX (OESOPHAGEAL)
  2. PRILOSEC [Concomitant]
     Indication: ACID REFLUX (OESOPHAGEAL)
  3. AVASTIN [Concomitant]
     Indication: MACULAR DEGENERATION

REACTIONS (3)
  - Age-related macular degeneration [None]
  - Retinal haemorrhage [None]
  - Platelet count abnormal [None]
